FAERS Safety Report 8509095-7 (Version None)
Quarter: 2012Q3

REPORT INFORMATION
  Report Type: 
  Country: None (occurrence: None)
  Receive Date: 20120713
  Receipt Date: 20120703
  Transmission Date: 20120928
  Serious: Yes (Hospitalization)
  Sender: FDA-Public Use
  Company Number: US-GLAXOSMITHKLINE-A0693051A

PATIENT
  Age: 65 Year
  Sex: Female
  Weight: 70.5 kg

DRUGS (5)
  1. ACTOS [Concomitant]
     Dates: start: 20060301
  2. AVANDIA [Suspect]
     Indication: TYPE 2 DIABETES MELLITUS
     Dosage: 4MG PER DAY
     Route: 048
     Dates: start: 19990101, end: 20070101
  3. GLUCOTROL [Concomitant]
     Dates: start: 20060101
  4. TOPROL-XL [Concomitant]
     Dates: start: 20050101, end: 20060101
  5. LIPITOR [Concomitant]
     Dates: start: 20030101, end: 20070101

REACTIONS (3)
  - PAIN [None]
  - MYOCARDIAL INFARCTION [None]
  - HEART INJURY [None]
